FAERS Safety Report 7823413-4 (Version None)
Quarter: 2011Q4

REPORT INFORMATION
  Report Type: 
  Country: None (occurrence: None)
  Receive Date: 20111014
  Receipt Date: 20111005
  Transmission Date: 20120403
  Serious: Yes (Other)
  Sender: FDA-Public Use
  Company Number: AUR-APL-2011-05410

PATIENT
  Sex: Female

DRUGS (2)
  1. CITALOPRAM HYDROBROMIDE [Suspect]
     Dates: start: 20110601
  2. ZOLOFT [Suspect]
     Indication: DEPRESSION
     Dosage: (50 MG),
     Dates: start: 20110201, end: 20110601

REACTIONS (2)
  - RECTAL HAEMORRHAGE [None]
  - COLITIS ISCHAEMIC [None]
